FAERS Safety Report 10237206 (Version 2)
Quarter: 2014Q2

REPORT INFORMATION
  Report Type: Report from Study
  Country: US (occurrence: US)
  Receive Date: 20140613
  Receipt Date: 20140626
  Transmission Date: 20141212
  Serious: Yes (Other)
  Sender: FDA-Public Use
  Company Number: US-ACTELION-A-NJ2014-100048

PATIENT
  Age: 31 Year
  Sex: Female

DRUGS (5)
  1. VELETRI [Suspect]
     Indication: PULMONARY ARTERIAL HYPERTENSION
     Dosage: 1.5 MG, UNK
     Route: 042
     Dates: start: 20120705
  2. VELETRI [Suspect]
     Dosage: 18 NG/KG, PER MIN
     Route: 041
  3. WARFARIN [Concomitant]
  4. LETAIRIS [Concomitant]
  5. SILDENAFIL CITRATE [Concomitant]

REACTIONS (1)
  - Lower limb fracture [Unknown]
